FAERS Safety Report 10089441 (Version 1)
Quarter: 2014Q2

REPORT INFORMATION
  Report Type: Spontaneous
  Country: IT (occurrence: IT)
  Receive Date: 20140421
  Receipt Date: 20140421
  Transmission Date: 20141212
  Serious: Yes (Other)
  Sender: FDA-Public Use
  Company Number: IT-MYLANLABS-2014S1008204

PATIENT
  Age: 79 Year
  Sex: Female

DRUGS (4)
  1. GLICLAZIDE [Suspect]
     Indication: TYPE 2 DIABETES MELLITUS
     Dosage: 1 DF DAILY
     Route: 048
     Dates: start: 20130101, end: 20130504
  2. METFORMIN [Suspect]
     Indication: TYPE 2 DIABETES MELLITUS
     Dosage: 3 DF DAILY
     Route: 048
     Dates: start: 20130101, end: 20130504
  3. CARDIRENE [Concomitant]
     Indication: PRODUCT USED FOR UNKNOWN INDICATION
     Route: 048
  4. LANSOPRAZOLE [Concomitant]
     Indication: PRODUCT USED FOR UNKNOWN INDICATION
     Route: 048

REACTIONS (3)
  - Asthenia [Recovering/Resolving]
  - Dysarthria [Recovering/Resolving]
  - Hypoglycaemia [Recovering/Resolving]
